FAERS Safety Report 17400042 (Version 1)
Quarter: 2020Q1

REPORT INFORMATION
  Report Type: Spontaneous
  Country: SA (occurrence: SA)
  Receive Date: 20200211
  Receipt Date: 20200211
  Transmission Date: 20200409
  Serious: Yes (Hospitalization, Other)
  Sender: FDA-Public Use
  Company Number: SA-BION-008540

PATIENT
  Age: 23 Year
  Sex: Female

DRUGS (3)
  1. LEVOTHYROXINE. [Concomitant]
     Active Substance: LEVOTHYROXINE
     Indication: HYPOTHYROIDISM
  2. IBUPROFEN. [Suspect]
     Active Substance: IBUPROFEN
     Indication: PERINEAL PAIN
     Dosage: TO BE TAKEN AS NEEDED
  3. PARACETAMOL [Concomitant]
     Active Substance: ACETAMINOPHEN
     Indication: PERINEAL PAIN
     Dosage: TO BE TAKEN AS NEEDED

REACTIONS (1)
  - Anaphylactic shock [Recovered/Resolved]
